FAERS Safety Report 7875940-1 (Version None)
Quarter: 2011Q4

REPORT INFORMATION
  Report Type: 
  Country: None (occurrence: None)
  Receive Date: 20111031
  Receipt Date: 20111025
  Transmission Date: 20120403
  Serious: Yes (Hospitalization)
  Sender: FDA-Public Use
  Company Number: DE-ROCHE-771154

PATIENT
  Age: 74 Year
  Sex: Male
  Weight: 88 kg

DRUGS (4)
  1. AVASTIN [Suspect]
     Indication: GLIOBLASTOMA
     Dosage: LAST DOSE PRIOR TO SAE: 14 FEBRUARY 2011, FORM: INFUSION
     Route: 042
  2. TEMOZOLOMIDE [Suspect]
     Indication: GLIOBLASTOMA
     Dosage: LAST DOSE PRIOR TOS AE: 16 DECEMBER 2010, FRE: 5/23
     Route: 048
  3. VERAPAMIL [Concomitant]
  4. RAMIPRIL [Concomitant]

REACTIONS (1)
  - PYREXIA [None]
